FAERS Safety Report 17534131 (Version 1)
Quarter: 2020Q1

REPORT INFORMATION
  Report Type: Spontaneous
  Country: SG (occurrence: SG)
  Receive Date: 20200312
  Receipt Date: 20200312
  Transmission Date: 20200409
  Serious: Yes (Death, Hospitalization, Other)
  Sender: FDA-Public Use
  Company Number: SG-009507513-2003SGP001849

PATIENT
  Age: 61 Year
  Sex: Female
  Weight: 85.6 kg

DRUGS (5)
  1. ATORVASTATIN [Concomitant]
     Active Substance: ATORVASTATIN
     Dosage: 40 MILLIGRAM, EVERY NIGHT (REPORTED AS ^ON^)
     Route: 048
  2. KEYTRUDA [Suspect]
     Active Substance: PEMBROLIZUMAB
     Indication: METASTATIC MALIGNANT MELANOMA
     Dosage: 200 MILLIGRAM, EVERY 4 WEEKS
     Route: 042
     Dates: start: 20200203
  3. METFORMIN [Concomitant]
     Active Substance: METFORMIN HYDROCHLORIDE
     Dosage: 1 GRAM, TWICE DAILY (REPORTED AS ^BD^)
     Route: 048
  4. KEYTRUDA [Suspect]
     Active Substance: PEMBROLIZUMAB
     Indication: OESOPHAGEAL CARCINOMA
     Dosage: 200 MILLIGRAM, EVERY 4 WEEKS
     Route: 042
     Dates: start: 20200103
  5. ESOMEPRAZOLE. [Concomitant]
     Active Substance: ESOMEPRAZOLE MAGNESIUM
     Dosage: 20 MILLIGRAM, TWICE DAILY (REPORTED AS BD)
     Route: 048

REACTIONS (8)
  - Pneumothorax [Unknown]
  - Tumour haemorrhage [Unknown]
  - Hyperthermia malignant [Unknown]
  - Inappropriate schedule of product administration [Unknown]
  - Malignant neoplasm progression [Unknown]
  - Upper gastrointestinal haemorrhage [Unknown]
  - Tumour perforation [Unknown]
  - Death [Fatal]

NARRATIVE: CASE EVENT DATE: 2020
